FAERS Safety Report 10726267 (Version 1)
Quarter: 2015Q1

REPORT INFORMATION
  Report Type: Spontaneous
  Country: US (occurrence: None)
  Receive Date: 20150120
  Receipt Date: 20150120
  Transmission Date: 20150721
  Serious: No
  Sender: FDA-Public Use
  Company Number: None

PATIENT
  Age: 65 Year
  Sex: Male

DRUGS (1)
  1. HARVONI [Suspect]
     Active Substance: LEDIPASVIR\SOFOSBUVIR
     Dosage: 1 TABLET DAILY PO
     Route: 048
     Dates: start: 20141217

REACTIONS (4)
  - Constipation [None]
  - Dehydration [None]
  - Fatigue [None]
  - Weight decreased [None]

NARRATIVE: CASE EVENT DATE: 20141217
